FAERS Safety Report 13075192 (Version 1)
Quarter: 2016Q4

REPORT INFORMATION
  Report Type: Spontaneous
  Country: US (occurrence: US)
  Receive Date: 20161230
  Receipt Date: 20161230
  Transmission Date: 20170207
  Serious: No
  Sender: FDA-Public Use
  Company Number: US-BAYER-2016-246793

PATIENT
  Age: 49 Year
  Sex: Female

DRUGS (1)
  1. STIVARGA [Suspect]
     Active Substance: REGORAFENIB
     Indication: RECTAL CANCER
     Dosage: 160 MG, QD , FOR 21 DAYS AND 7 DAYS OFF
     Route: 048
     Dates: start: 20161224

REACTIONS (1)
  - Burning sensation [None]

NARRATIVE: CASE EVENT DATE: 20161225
